FAERS Safety Report 7980075-3 (Version None)
Quarter: 2011Q4

REPORT INFORMATION
  Report Type: 
  Country: None (occurrence: None)
  Receive Date: 20111214
  Receipt Date: 20111212
  Transmission Date: 20120403
  Serious: Yes (Other)
  Sender: FDA-Public Use
  Company Number: ES-MERCK-1112ESP00013

PATIENT
  Age: 83 Year
  Sex: Female

DRUGS (3)
  1. RISEDRONATE SODIUM [Suspect]
     Indication: OSTEOPOROSIS POSTMENOPAUSAL
     Route: 048
     Dates: start: 20070603, end: 20110926
  2. RISEDRONATE SODIUM [Suspect]
     Route: 048
     Dates: start: 20070424, end: 20080514
  3. FOSAMAX PLUS D [Suspect]
     Indication: OSTEOPOROSIS POSTMENOPAUSAL
     Route: 048
     Dates: start: 20080514, end: 20090603

REACTIONS (1)
  - FEMUR FRACTURE [None]
